FAERS Safety Report 12968629 (Version 1)
Quarter: 2016Q4

REPORT INFORMATION
  Report Type: Spontaneous
  Country: US (occurrence: US)
  Receive Date: 20161123
  Receipt Date: 20161123
  Transmission Date: 20170207
  Serious: Yes (Life-Threatening)
  Sender: FDA-Public Use
  Company Number: None

PATIENT
  Age: 73 Year
  Sex: Female
  Weight: 54.43 kg

DRUGS (13)
  1. ATENOLOL 25 MG TAB SANDOZ [Suspect]
     Active Substance: ATENOLOL
     Indication: MITRAL VALVE REPAIR
     Dosage: TOTAL QUANITY - 30 PILLS - 1 HS - PO
     Route: 048
     Dates: start: 201605, end: 20160715
  2. ATENOLOL. [Concomitant]
     Active Substance: ATENOLOL
  3. MAGNESIUM [Concomitant]
     Active Substance: MAGNESIUM
  4. CALCIUM [Concomitant]
     Active Substance: CALCIUM
  5. PROBIOTICS [Concomitant]
     Active Substance: PROBIOTICS NOS
  6. FISH OIL [Concomitant]
     Active Substance: FISH OIL
  7. BABY ASPIRIN [Concomitant]
     Active Substance: ASPIRIN
  8. VITAMIN B [Concomitant]
     Active Substance: VITAMIN B
  9. VITAMIN D3 [Concomitant]
     Active Substance: CHOLECALCIFEROL
  10. ATENOLOL 25 MG TAB SANDOZ [Suspect]
     Active Substance: ATENOLOL
     Indication: BLOOD PRESSURE INCREASED
     Dosage: TOTAL QUANITY - 30 PILLS - 1 HS - PO
     Route: 048
     Dates: start: 201605, end: 20160715
  11. AMLODIPINE [Concomitant]
     Active Substance: AMLODIPINE BESYLATE
  12. COQ10 [Concomitant]
     Active Substance: UBIDECARENONE
  13. VITAMIN C [Suspect]
     Active Substance: ASCORBIC ACID

REACTIONS (3)
  - Blood pressure increased [None]
  - Condition aggravated [None]
  - Product substitution issue [None]
